FAERS Safety Report 5807422-2 (Version None)
Quarter: 2008Q3

REPORT INFORMATION
  Report Type: 
  Country: None (occurrence: None)
  Receive Date: 20080711
  Receipt Date: 20020606
  Transmission Date: 20090109
  Serious: Yes (Other)
  Sender: FDA-Public Use
  Company Number: US-BAXTER-2007BH008843

PATIENT
  Age: 63 Year
  Sex: Male

DRUGS (2)
  1. LACTATED RINGER'S [Suspect]
     Indication: DEHYDRATION
     Route: 042
     Dates: start: 20020521, end: 20020521
  2. ANCEF [Suspect]
     Indication: DRUG USE FOR UNKNOWN INDICATION
     Route: 040
     Dates: start: 20020521, end: 20020521

REACTIONS (2)
  - SOMNOLENCE [None]
  - UNRESPONSIVE TO STIMULI [None]
